FAERS Safety Report 7101007-6 (Version None)
Quarter: 2010Q4

REPORT INFORMATION
  Report Type: 
  Country: None (occurrence: None)
  Receive Date: 20101113
  Receipt Date: 20100413
  Transmission Date: 20110411
  Serious: No
  Sender: FDA-Public Use
  Company Number: US-ALLERGAN-1004817US

PATIENT
  Age: 43 Year
  Sex: Female

DRUGS (1)
  1. BOTOXA? [Suspect]
     Indication: HYPERHIDROSIS
     Dosage: 150 UNITS, SINGLE
     Route: 023
     Dates: start: 20100329, end: 20100329

REACTIONS (1)
  - MUSCULAR WEAKNESS [None]
